FAERS Safety Report 13280430 (Version 2)
Quarter: 2017Q1

REPORT INFORMATION
  Report Type: Spontaneous
  Country: GB (occurrence: GB)
  Receive Date: 20170301
  Receipt Date: 20170328
  Transmission Date: 20170428
  Serious: Yes (Hospitalization, Other)
  Sender: FDA-Public Use
  Company Number: GB-AUROBINDO-AUR-APL-2017-00180

PATIENT
  Age: 76 Year
  Sex: Female

DRUGS (9)
  1. PARACETAMOL [Suspect]
     Active Substance: ACETAMINOPHEN
     Indication: EXTRADURAL ABSCESS
  2. FLUCLOXACILLIN [Suspect]
     Active Substance: FLUCLOXACILLIN
     Indication: PSOAS ABSCESS
     Dosage: UNK
     Route: 042
  3. FLUCLOXACILLIN [Suspect]
     Active Substance: FLUCLOXACILLIN
     Indication: EXTRADURAL ABSCESS
  4. RIFAMPICIN [Concomitant]
     Active Substance: RIFAMPIN
     Indication: PSOAS ABSCESS
     Route: 048
  5. RIFAMPICIN [Concomitant]
     Active Substance: RIFAMPIN
     Indication: INTERVERTEBRAL DISCITIS
  6. RIFAMPICIN [Concomitant]
     Active Substance: RIFAMPIN
     Indication: EXTRADURAL ABSCESS
  7. PARACETAMOL [Suspect]
     Active Substance: ACETAMINOPHEN
     Indication: PSOAS ABSCESS
  8. FLUCLOXACILLIN [Suspect]
     Active Substance: FLUCLOXACILLIN
     Indication: INTERVERTEBRAL DISCITIS
  9. PARACETAMOL [Suspect]
     Active Substance: ACETAMINOPHEN
     Indication: INTERVERTEBRAL DISCITIS
     Dosage: 1 G, FOUR TIMES/DAY
     Route: 048

REACTIONS (2)
  - Hypokalaemia [Unknown]
  - Metabolic acidosis [Recovered/Resolved]
